FAERS Safety Report 25240566 (Version 3)
Quarter: 2025Q3

REPORT INFORMATION
  Report Type: Report from Study
  Country: US (occurrence: US)
  Receive Date: 20250425
  Receipt Date: 20250818
  Transmission Date: 20251020
  Serious: Yes (Hospitalization, Other)
  Sender: TRAVERE THERAPEUTICS
  Company Number: US-TRAVERE-2025TVT00537

PATIENT
  Age: 28 Year
  Sex: Male

DRUGS (11)
  1. FILSPARI [Suspect]
     Active Substance: SPARSENTAN
     Indication: IgA nephropathy
     Route: 048
     Dates: start: 202411, end: 202505
  2. TELMISARTAN [Concomitant]
     Active Substance: TELMISARTAN
     Indication: Product used for unknown indication
  3. FISH OIL [Concomitant]
     Active Substance: FISH OIL
  4. Multi [Concomitant]
  5. POTASSIUM [Concomitant]
     Active Substance: POTASSIUM
  6. FUROSEMIDE [Concomitant]
     Active Substance: FUROSEMIDE
  7. NORTRIPTYLINE HYDROCHLORIDE [Concomitant]
     Active Substance: NORTRIPTYLINE HYDROCHLORIDE
  8. RIZATRIPTAN BENZOATE [Concomitant]
     Active Substance: RIZATRIPTAN BENZOATE
  9. METOPROLOL SUCCINATE [Concomitant]
     Active Substance: METOPROLOL SUCCINATE
  10. ZOLMITRIPTAN [Concomitant]
     Active Substance: ZOLMITRIPTAN
  11. TARPEYO [Concomitant]
     Active Substance: BUDESONIDE

REACTIONS (8)
  - End stage renal disease [None]
  - Influenza [Recovered/Resolved]
  - Anaemia [Unknown]
  - Blood urine [Unknown]
  - Dysstasia [Unknown]
  - Fatigue [Unknown]
  - Contraindicated product administered [Unknown]
  - Pain [Unknown]

NARRATIVE: CASE EVENT DATE: 20250101
